FAERS Safety Report 8800767 (Version 2)
Quarter: 2012Q4

REPORT INFORMATION
  Report Type: Report from Study
  Country: BE (occurrence: US)
  Receive Date: 20120920
  Receipt Date: 20120927
  Transmission Date: 20130627
  Serious: Yes (Other)
  Sender: FDA-Public Use
  Company Number: US-BRISTOL-MYERS SQUIBB COMPANY-16965600

PATIENT
  Age: 40 Year
  Sex: Male

DRUGS (5)
  1. BLINDED: IPILIMUMAB [Suspect]
     Indication: MALIGNANT MELANOMA
     Dosage: No of course 12
     Route: 042
     Dates: start: 20100517, end: 20120910
  2. BLINDED: PLACEBO [Suspect]
     Indication: MALIGNANT MELANOMA
     Dates: start: 20120517, end: 20120910
  3. PREDNISONE [Concomitant]
     Dosage: tabs,20mg
     Route: 048
     Dates: start: 20120330
  4. HYDROCORTISONE [Concomitant]
     Dosage: Tabs,Freq:As necessary, 1 tab each morn,5-10 mg every morn.
     Route: 048
  5. MECLIZINE [Concomitant]
     Indication: DIZZINESS
     Dosage: As needed
     Route: 048

REACTIONS (1)
  - Hypoacusis [Unknown]
